FAERS Safety Report 15157357 (Version 1)
Quarter: 2018Q4

REPORT INFORMATION
  Report Type: Spontaneous
  Country: US (occurrence: US)
  Receive Date: 20180718
  Receipt Date: 20180718
  Transmission Date: 20190204
  Serious: No
  Sender: FDA-Public Use
  Company Number: US-CEDIPROF, INC.-2052290

PATIENT
  Sex: Male

DRUGS (1)
  1. LEVO-T [Suspect]
     Active Substance: LEVOTHYROXINE SODIUM

REACTIONS (4)
  - Rash [Unknown]
  - Weight decreased [Unknown]
  - Poor quality sleep [Unknown]
  - Dry skin [Unknown]
